FAERS Safety Report 9236772 (Version 1)
Quarter: 2013Q2

REPORT INFORMATION
  Report Type: Spontaneous
  Country: US (occurrence: None)
  Receive Date: 20130415
  Receipt Date: 20130415
  Transmission Date: 20140414
  Serious: Yes (Hospitalization)
  Sender: FDA-Public Use
  Company Number: IMP_06657_2013

PATIENT
  Age: 69 Year
  Sex: Male

DRUGS (1)
  1. OXYBUTYNIN [Suspect]
     Indication: PRODUCT USED FOR UNKNOWN INDICATION

REACTIONS (3)
  - Renal failure acute [None]
  - Incorrect dose administered [None]
  - Hydronephrosis [None]
